FAERS Safety Report 9793225 (Version 1)
Quarter: 2014Q1

REPORT INFORMATION
  Report Type: Spontaneous
  Country: US (occurrence: US)
  Receive Date: 20140102
  Receipt Date: 20140102
  Transmission Date: 20141002
  Serious: No
  Sender: FDA-Public Use
  Company Number: US-TEVA-453711USA

PATIENT
  Sex: Female
  Weight: 53.57 kg

DRUGS (9)
  1. TREANDA [Suspect]
     Indication: B-CELL LYMPHOMA
  2. RITUXAN [Concomitant]
     Indication: B-CELL LYMPHOMA
  3. AMBIEN [Concomitant]
     Indication: SLEEP DISORDER
  4. MELATONIN [Concomitant]
     Indication: SLEEP DISORDER
  5. PROBIOTIC [Concomitant]
     Indication: IRRITABLE BOWEL SYNDROME
  6. FISH OIL [Concomitant]
  7. KLONOPIN [Concomitant]
     Indication: ANXIETY
  8. REFRESH [Concomitant]
     Indication: DRY EYE
  9. FLONASE [Concomitant]
     Indication: NASAL CONGESTION

REACTIONS (3)
  - White blood cell count decreased [Not Recovered/Not Resolved]
  - Dyspnoea [Not Recovered/Not Resolved]
  - Fatigue [Not Recovered/Not Resolved]
